FAERS Safety Report 4634770-4 (Version None)
Quarter: 2005Q2

REPORT INFORMATION
  Report Type: 
  Country: None (occurrence: None)
  Receive Date: 20050412
  Receipt Date: 20050401
  Transmission Date: 20051028
  Serious: Yes (Other)
  Sender: FDA-Public Use
  Company Number: 163-20785-04100120

PATIENT
  Sex: 0

DRUGS (1)
  1. THALOMID [Suspect]
     Indication: CHRONIC LYMPHOCYTIC LEUKAEMIA
     Dosage: 200MG ON DAYS 1-14 INCREASING  200MG Q2WKS UP TO 1000MG, DAILY, ORAL
     Route: 048
     Dates: start: 20030114

REACTIONS (10)
  - ASTHENIA [None]
  - DISEASE PROGRESSION [None]
  - FATIGUE [None]
  - GRANULOCYTES ABNORMAL [None]
  - LETHARGY [None]
  - MALAISE [None]
  - NEUROPATHY [None]
  - NEUTROPHIL COUNT ABNORMAL [None]
  - PERIPHERAL SENSORY NEUROPATHY [None]
  - TUMOUR FLARE [None]
